FAERS Safety Report 8102079-2 (Version None)
Quarter: 2012Q1

REPORT INFORMATION
  Report Type: 
  Country: None (occurrence: None)
  Receive Date: 20120131
  Receipt Date: 20120119
  Transmission Date: 20120608
  Serious: Yes (Hospitalization, Disabling)
  Sender: FDA-Public Use
  Company Number: US-MERCK-1110USA02742

PATIENT
  Age: 68 Year
  Sex: Female
  Weight: 69 kg

DRUGS (25)
  1. FUROSEMIDE [Concomitant]
     Indication: HYPERTENSION
     Route: 048
     Dates: end: 20100101
  2. POTASSIUM (UNSPECIFIED) [Concomitant]
     Route: 065
  3. SYNTHROID [Concomitant]
     Indication: HYPOTHYROIDISM
     Route: 065
  4. XALATAN [Concomitant]
     Indication: GLAUCOMA
     Route: 047
  5. PROCARDIA XL [Concomitant]
     Route: 065
  6. ULINASTATIN [Concomitant]
     Indication: BLADDER SPASM
     Route: 048
  7. FOSAMAX [Suspect]
     Indication: OSTEOPOROSIS
     Route: 048
     Dates: start: 20040201, end: 20110101
  8. CATAPRES [Concomitant]
     Route: 065
  9. ACTONEL [Concomitant]
     Indication: OSTEOPOROSIS
     Route: 048
  10. FOSAMAX [Suspect]
     Route: 048
  11. FOSAMAX [Suspect]
     Route: 048
     Dates: start: 20010401, end: 20030801
  12. ANTIVERT [Concomitant]
     Indication: VERTIGO
     Route: 048
     Dates: start: 20010401
  13. PROLIA [Concomitant]
     Indication: SENILE OSTEOPOROSIS
     Route: 058
  14. FOSAMAX [Suspect]
     Indication: HOT FLUSH
     Route: 048
     Dates: start: 20040201, end: 20110101
  15. FOSAMAX [Suspect]
     Route: 048
     Dates: start: 20010401, end: 20030801
  16. PREVACID [Concomitant]
     Indication: GASTROOESOPHAGEAL REFLUX DISEASE
     Route: 048
     Dates: start: 20000101, end: 20110101
  17. ALPRAZOLAM [Concomitant]
     Indication: HYPERTENSION
     Route: 048
     Dates: end: 20110101
  18. FOSAMAX [Suspect]
     Route: 048
  19. PROCARDIA [Concomitant]
     Indication: HYPERTENSION
     Route: 065
     Dates: start: 19940101, end: 20070101
  20. VITAMIN E [Concomitant]
     Route: 048
     Dates: start: 19980101, end: 20100101
  21. LEVOTHYROXINE SODIUM [Concomitant]
     Route: 048
  22. FUROSEMIDE [Concomitant]
     Indication: OEDEMA
     Route: 048
     Dates: end: 20100101
  23. TIMOPTIC IN OCUDOSE [Concomitant]
     Indication: GLAUCOMA
     Route: 047
  24. PHENAZOPYRIDINE HCL TAB [Concomitant]
     Indication: BLADDER SPASM
     Route: 065
  25. NIACIN [Concomitant]
     Indication: HYPERLIPIDAEMIA
     Route: 048

REACTIONS (39)
  - ARTERIOSCLEROSIS [None]
  - DIARRHOEA [None]
  - VITAMIN D DEFICIENCY [None]
  - PAIN [None]
  - LEUKOCYTOSIS [None]
  - OEDEMA PERIPHERAL [None]
  - NAUSEA [None]
  - FEMUR FRACTURE [None]
  - ACUTE MYOCARDIAL INFARCTION [None]
  - HAEMORRHAGIC ANAEMIA [None]
  - BACK PAIN [None]
  - DIVERTICULITIS [None]
  - DIZZINESS POSTURAL [None]
  - IMPAIRED FASTING GLUCOSE [None]
  - OVERDOSE [None]
  - MYOCARDIAL ISCHAEMIA [None]
  - OFF LABEL USE [None]
  - GENERAL SYMPTOM [None]
  - HYPOKALAEMIA [None]
  - INFECTION [None]
  - MYALGIA [None]
  - COUGH [None]
  - EAR DISORDER [None]
  - VARICOSE VEIN [None]
  - DYSURIA [None]
  - LOW TURNOVER OSTEOPATHY [None]
  - ANAEMIA [None]
  - FALL [None]
  - HERPES ZOSTER [None]
  - MUSCLE SPASMS [None]
  - CARDIAC DISORDER [None]
  - VENOUS INSUFFICIENCY [None]
  - CORONARY ARTERY DISEASE [None]
  - DRUG INTOLERANCE [None]
  - EPIGASTRIC DISCOMFORT [None]
  - SEBORRHOEIC KERATOSIS [None]
  - PYURIA [None]
  - OSTEOARTHRITIS [None]
  - HAEMANGIOMA [None]
